FAERS Safety Report 8934649 (Version 3)
Quarter: 2013Q1

REPORT INFORMATION
  Report Type: Spontaneous
  Country: JP (occurrence: JP)
  Receive Date: 20121129
  Receipt Date: 20130131
  Transmission Date: 20140127
  Serious: Yes (Hospitalization)
  Sender: FDA-Public Use
  Company Number: JP-JNJFOC-20121112296

PATIENT
  Age: 71 Year
  Sex: Female
  Weight: 48 kg

DRUGS (9)
  1. MAINTATE [Concomitant]
     Indication: SUPRAVENTRICULAR EXTRASYSTOLES
     Route: 048
  2. BUFFERIN 81MG [Concomitant]
     Indication: SUPRAVENTRICULAR EXTRASYSTOLES
     Route: 048
  3. GASLON N [Concomitant]
     Indication: GASTRITIS
     Route: 048
  4. GASMOTIN [Concomitant]
     Indication: GASTRITIS
     Route: 048
  5. SIMPONI [Suspect]
     Indication: RHEUMATOID ARTHRITIS
     Route: 058
     Dates: start: 20120509, end: 20121009
  6. NATRIX [Concomitant]
     Indication: HYPERTENSION
     Route: 048
  7. DIOVAN [Concomitant]
     Indication: HYPERTENSION
     Route: 048
  8. NORVASC [Concomitant]
     Indication: HYPERTENSION
     Route: 048
  9. SUNRYTHM [Concomitant]
     Indication: SUPRAVENTRICULAR EXTRASYSTOLES
     Route: 048

REACTIONS (1)
  - Interstitial lung disease [Recovered/Resolved]
